FAERS Safety Report 8171955-7 (Version None)
Quarter: 2012Q1

REPORT INFORMATION
  Report Type: 
  Country: None (occurrence: None)
  Receive Date: 20120228
  Receipt Date: 20120220
  Transmission Date: 20120608
  Serious: Yes (Hospitalization)
  Sender: FDA-Public Use
  Company Number: US-TEVA-323750USA

PATIENT
  Age: 75 Year
  Sex: Male

DRUGS (3)
  1. BACLOFEN [Suspect]
     Indication: LIGAMENT RUPTURE
     Route: 065
  2. PERCOCET [Concomitant]
     Indication: PAIN
     Dosage: OXYCODONE 5MG/PARACETAMOL 325MG, ONE TABLET EVERY 6H AS NEEDED
     Route: 065
  3. BACLOFEN [Suspect]
     Indication: MENISCUS LESION
     Route: 065

REACTIONS (4)
  - MENTAL DISORDER [None]
  - ENCEPHALOPATHY [None]
  - MOVEMENT DISORDER [None]
  - LETHARGY [None]
